FAERS Safety Report 4807414-6 (Version None)
Quarter: 2005Q4

REPORT INFORMATION
  Report Type: 
  Country: None (occurrence: None)
  Receive Date: 20051020
  Receipt Date: 20050929
  Transmission Date: 20060501
  Serious: Yes (Hospitalization)
  Sender: FDA-Public Use
  Company Number: MEDI-0003713

PATIENT
  Age: 55 Year
  Sex: Female
  Weight: 68.0396 kg

DRUGS (16)
  1. ETHYOL [Suspect]
     Indication: CHEMOTHERAPY
     Dosage: 5 IN 1 WK, SUBCUTANEOUS
     Route: 058
     Dates: start: 20050801, end: 20050919
  2. ETHYOL [Suspect]
     Indication: RADIOTHERAPY
     Dosage: 5 IN 1 WK, SUBCUTANEOUS
     Route: 058
     Dates: start: 20050801, end: 20050919
  3. RADIATION THERAPY [Concomitant]
  4. CARBOPLATIN [Concomitant]
  5. FLUOROURACIL [Concomitant]
  6. ACYCLOVIR [Concomitant]
  7. ROCEPHIN [Concomitant]
  8. DIGOXIN [Concomitant]
  9. FLUCONAZOLE [Concomitant]
  10. INSULIN [Concomitant]
  11. PROTONIX [Concomitant]
  12. CARAFATE [Concomitant]
  13. TOPROL-XL [Concomitant]
  14. ZOFRAN [Concomitant]
  15. REGLAN [Concomitant]
  16. DECADRON [Concomitant]

REACTIONS (3)
  - CANCER PAIN [None]
  - CHEST PAIN [None]
  - HYPOTENSION [None]
